FAERS Safety Report 20003581 (Version 1)
Quarter: 2021Q4

REPORT INFORMATION
  Report Type: Spontaneous
  Country: US (occurrence: US)
  Receive Date: 20211028
  Receipt Date: 20211028
  Transmission Date: 20220303
  Serious: No
  Sender: FDA-Public Use
  Company Number: US-GLENMARK PHARMACEUTICALS-2021GMK068027

PATIENT

DRUGS (9)
  1. PRAMIPEXOLE DIHYDROCHLORIDE [Suspect]
     Active Substance: PRAMIPEXOLE DIHYDROCHLORIDE
     Indication: Depression
     Dosage: 3 MILLIGRAM (YEARS AGO FROM THE REPORT)
     Route: 048
  2. PRAMIPEXOLE DIHYDROCHLORIDE [Suspect]
     Active Substance: PRAMIPEXOLE DIHYDROCHLORIDE
     Dosage: 1.25 MILLIGRAM
     Route: 048
  3. PRAMIPEXOLE DIHYDROCHLORIDE [Suspect]
     Active Substance: PRAMIPEXOLE DIHYDROCHLORIDE
     Indication: Depression
     Dosage: 1 DOSAGE FORM, AM
     Route: 048
  4. PRAMIPEXOLE DIHYDROCHLORIDE [Suspect]
     Active Substance: PRAMIPEXOLE DIHYDROCHLORIDE
     Indication: Depression
     Dosage: 1 DOSAGE FORM, HS
     Route: 048
  5. GABAPENTIN [Concomitant]
     Active Substance: GABAPENTIN
     Indication: Depression
     Dosage: 300 MILLIGRAM, TID
     Route: 048
     Dates: start: 20210223
  6. GABAPENTIN [Concomitant]
     Active Substance: GABAPENTIN
     Indication: Insomnia
  7. METOPROLOL [Concomitant]
     Active Substance: METOPROLOL
     Indication: Ventricular extrasystoles
     Dosage: 50 MILLIGRAM, BID
     Route: 048
  8. EMSAM [Concomitant]
     Active Substance: SELEGILINE
     Indication: Antidepressant therapy
     Dosage: UNK, TRANSDERMAL PATCH 24 HOURS (TO PUT ON ARMS)
     Route: 065
     Dates: start: 202101
  9. SIMVASTATIN [Concomitant]
     Active Substance: SIMVASTATIN
     Indication: Blood cholesterol increased
     Dosage: 20 MILLIGRAM, QD
     Route: 048

REACTIONS (6)
  - Product use in unapproved indication [Unknown]
  - Underdose [Unknown]
  - Ventricular extrasystoles [Unknown]
  - Condition aggravated [Unknown]
  - Palpitations [Unknown]
  - Product appearance confusion [Unknown]
